FAERS Safety Report 4695094-2 (Version None)
Quarter: 2005Q2

REPORT INFORMATION
  Report Type: 
  Country: None (occurrence: None)
  Receive Date: 20050617
  Receipt Date: 20050607
  Transmission Date: 20051028
  Serious: Yes (Other)
  Sender: FDA-Public Use
  Company Number: 2005082131

PATIENT
  Age: 61 Year
  Sex: Female

DRUGS (2)
  1. IDARUBICIN HCL [Suspect]
     Indication: MYELOID LEUKAEMIA
     Dosage: 15 MG, CYCLIC, INTRAVENOUS
     Route: 042
     Dates: start: 20050519
  2. CYTARABINE [Suspect]
     Indication: MYELOID LEUKAEMIA
     Dosage: 1500 MG, CYLIC, INTRAVENOUS
     Route: 042
     Dates: start: 20050519

REACTIONS (2)
  - INCORRECT ROUTE OF DRUG ADMINISTRATION [None]
  - PLEURAL EFFUSION [None]
